FAERS Safety Report 23470474 (Version 1)
Quarter: 2024Q1

REPORT INFORMATION
  Report Type: Spontaneous
  Country: CN (occurrence: CN)
  Receive Date: 20240202
  Receipt Date: 20240202
  Transmission Date: 20240409
  Serious: Yes (Other)
  Sender: FDA-Public Use
  Company Number: CN-PFIZER INC-PV202400014580

PATIENT
  Age: 19 Year
  Sex: Male
  Weight: 70 kg

DRUGS (1)
  1. EPIRUBICIN HYDROCHLORIDE [Suspect]
     Active Substance: EPIRUBICIN HYDROCHLORIDE
     Indication: Bladder cancer
     Dosage: 50 MG, 1X/DAY
     Route: 043
     Dates: start: 20240115, end: 20240115

REACTIONS (13)
  - Chills [Recovered/Resolved]
  - Cyanosis [Recovered/Resolved]
  - Blood potassium decreased [Recovered/Resolved]
  - Hypotension [Recovered/Resolved]
  - Oxygen saturation decreased [Recovered/Resolved]
  - Haemoglobin decreased [Unknown]
  - PCO2 decreased [Unknown]
  - PO2 increased [Unknown]
  - Brain natriuretic peptide increased [Unknown]
  - Procalcitonin increased [Unknown]
  - Blood creatinine increased [Unknown]
  - Blood albumin decreased [Unknown]
  - C-reactive protein increased [Unknown]

NARRATIVE: CASE EVENT DATE: 20240115
